FAERS Safety Report 13434033 (Version 1)
Quarter: 2017Q2

REPORT INFORMATION
  Report Type: Spontaneous
  Country: FR (occurrence: FR)
  Receive Date: 20170413
  Receipt Date: 20170413
  Transmission Date: 20170830
  Serious: Yes (Hospitalization)
  Sender: FDA-Public Use
  Company Number: FR-ELI_LILLY_AND_COMPANY-FR201704001482

PATIENT
  Age: 69 Year
  Sex: Female

DRUGS (6)
  1. METFORMIN [Concomitant]
     Active Substance: METFORMIN HYDROCHLORIDE
     Dosage: UNK, UNKNOWN
     Route: 065
  2. NICARDIPINE [Concomitant]
     Active Substance: NICARDIPINE
     Dosage: UNK, UNKNOWN
     Route: 065
  3. FLUDEX                             /00340101/ [Concomitant]
     Active Substance: INDAPAMIDE
     Dosage: UNK, UNKNOWN
     Route: 065
  4. HUMALOG [Concomitant]
     Active Substance: INSULIN LISPRO
     Dosage: UNK, UNKNOWN
     Route: 065
  5. TRULICITY [Suspect]
     Active Substance: DULAGLUTIDE
     Indication: TYPE 2 DIABETES MELLITUS
     Dosage: 1 DF, WEEKLY (1/W)
     Route: 058
     Dates: start: 20170227, end: 20170306
  6. LOVENOX [Concomitant]
     Active Substance: ENOXAPARIN SODIUM
     Dosage: UNK, UNKNOWN
     Route: 065

REACTIONS (11)
  - Vomiting [Recovered/Resolved]
  - Pyrexia [Recovered/Resolved]
  - Bronchitis [Recovered/Resolved]
  - General physical health deterioration [Recovered/Resolved]
  - Fatigue [Recovered/Resolved]
  - Diarrhoea [Recovered/Resolved]
  - Nausea [Recovered/Resolved]
  - Weight decreased [Recovered/Resolved]
  - Productive cough [Recovered/Resolved]
  - Chills [Recovered/Resolved]
  - Decreased appetite [Recovered/Resolved]

NARRATIVE: CASE EVENT DATE: 20170227
